FAERS Safety Report 19372434 (Version 1)
Quarter: 2021Q2

REPORT INFORMATION
  Report Type: Spontaneous
  Country: US (occurrence: US)
  Receive Date: 20210604
  Receipt Date: 20210604
  Transmission Date: 20210717
  Serious: Yes (Hospitalization)
  Sender: FDA-Public Use
  Company Number: None

PATIENT
  Age: 43 Year
  Sex: Female
  Weight: 89.16 kg

DRUGS (2)
  1. CYCLOPHOSPHAMIDE. [Suspect]
     Active Substance: CYCLOPHOSPHAMIDE
     Dates: end: 20210513
  2. DOXORUBICIN HYDROCHLORIDE. [Suspect]
     Active Substance: DOXORUBICIN HYDROCHLORIDE
     Dates: end: 20210513

REACTIONS (7)
  - Blood lactic acid increased [None]
  - Sepsis [None]
  - Leukocytosis [None]
  - Nausea [None]
  - Decreased appetite [None]
  - Tachycardia [None]
  - Dysuria [None]

NARRATIVE: CASE EVENT DATE: 20210517
